FAERS Safety Report 8890640 (Version 2)
Quarter: 2012Q4

REPORT INFORMATION
  Report Type: 
  Country: AR (occurrence: AR)
  Receive Date: 20121107
  Receipt Date: 20121129
  Transmission Date: 20130627
  Serious: Yes (Other)
  Sender: FDA-Public Use
  Company Number: PHHY2012AR096853

PATIENT
  Age: 77 Year
  Sex: Male

DRUGS (2)
  1. DIOVAN D [Suspect]
     Indication: HYPERTENSION
     Dosage: 1 DF, 1 tablet per day
     Route: 048
  2. TERLOC [Concomitant]

REACTIONS (3)
  - Arrhythmia [Unknown]
  - Palpitations [Unknown]
  - Blood pressure fluctuation [Recovered/Resolved]
